FAERS Safety Report 8243001-8 (Version None)
Quarter: 2012Q1

REPORT INFORMATION
  Report Type: 
  Country: None (occurrence: None)
  Receive Date: 20120329
  Receipt Date: 20120323
  Transmission Date: 20120608
  Serious: Yes (Other)
  Sender: FDA-Public Use
  Company Number: JP-PFIZER INC-2012075234

PATIENT
  Sex: Female

DRUGS (2)
  1. VIVIANT [Concomitant]
     Dosage: UNK
     Dates: start: 20101201
  2. LYRICA [Suspect]
     Dosage: UNK
     Dates: start: 20111101

REACTIONS (5)
  - BLOOD POTASSIUM DECREASED [None]
  - ANAEMIA [None]
  - HAEMORRHAGE [None]
  - PROTEINURIA [None]
  - OEDEMA [None]
